FAERS Safety Report 8545743-3 (Version None)
Quarter: 2012Q3

REPORT INFORMATION
  Report Type: 
  Country: None (occurrence: None)
  Receive Date: 20120727
  Receipt Date: 20120718
  Transmission Date: 20120928
  Serious: Yes (Other)
  Sender: FDA-Public Use
  Company Number: GB-TEVA-349203ISR

PATIENT
  Age: 82 Year
  Sex: Female
  Weight: 66 kg

DRUGS (5)
  1. INDAPAMIDE [Suspect]
  2. CLOTRIMAZOLE [Concomitant]
     Dates: start: 20120522, end: 20120605
  3. AMLODIPINE [Concomitant]
     Dates: start: 20120316
  4. RAMIPRIL [Concomitant]
     Dates: start: 20120316
  5. OLIVE OIL [Concomitant]
     Dates: start: 20120522, end: 20120619

REACTIONS (2)
  - CIRCULATORY COLLAPSE [None]
  - HYPONATRAEMIA [None]
